FAERS Safety Report 7127982-1 (Version None)
Quarter: 2010Q4

REPORT INFORMATION
  Report Type: 
  Country: None (occurrence: None)
  Receive Date: 20101027
  Receipt Date: 20101015
  Transmission Date: 20110411
  Serious: Yes (Life-Threatening, Hospitalization, Other)
  Sender: FDA-Public Use
  Company Number: THYM-1001109

PATIENT
  Age: 49 Year
  Sex: Female
  Weight: 107.5 kg

DRUGS (27)
  1. THYMOGLOBULIN [Suspect]
     Indication: BONE MARROW TRANSPLANT
     Dosage: 0.5 MG/KG, INTRAVENOUS
     Route: 042
     Dates: start: 20090526, end: 20090528
  2. THYMOGLOBULIN [Suspect]
  3. CYCLOSPORINE [Concomitant]
  4. PANTOPRAZOLE SODIUM [Concomitant]
  5. ACYCLOVIR [Concomitant]
  6. POSACONAZOLE [Concomitant]
  7. METOCLOPRAMIDE [Concomitant]
  8. ONDANSETRON [Concomitant]
  9. POTASSIUM (POTASSIUM CHLORIDE) [Concomitant]
  10. COLONYTELY (SODIUM BICARBONATE) [Concomitant]
  11. MYCOPHENOLATE MOFETIL [Concomitant]
  12. FOLIC ACID [Concomitant]
  13. PROMETHAZINE [Concomitant]
  14. PENTAMIDINE (PENTAMIDINE) [Concomitant]
  15. ENOXAPARIN SODIUM [Concomitant]
  16. PHENOXYMETHYLPENICILLIN [Concomitant]
  17. URSODIOL [Concomitant]
  18. PANTOPRAZOLE SODIUM [Concomitant]
  19. VITAMIN D [Concomitant]
  20. VALACYCLOVIR [Concomitant]
  21. FUROSEMIDE [Concomitant]
  22. FENTANYL-100 [Concomitant]
  23. PROPOFOL [Concomitant]
  24. NILSTAT [Concomitant]
  25. ZANAMIVIR (ZANAMIVIR) [Concomitant]
  26. CHLORVESCENT (POTASSIUM CHLORIDE) [Concomitant]
  27. INSULIN (INSULIN) [Concomitant]

REACTIONS (22)
  - ACUTE GRAFT VERSUS HOST DISEASE IN SKIN [None]
  - APHASIA [None]
  - ATAXIA [None]
  - ATRIAL FIBRILLATION [None]
  - CHILLS [None]
  - CYTOMEGALOVIRUS TEST POSITIVE [None]
  - DIARRHOEA [None]
  - DIZZINESS [None]
  - FALL [None]
  - HEAD INJURY [None]
  - HEADACHE [None]
  - INFECTION [None]
  - INFLUENZA A VIRUS TEST POSITIVE [None]
  - INFUSION RELATED REACTION [None]
  - LYMPHOCYTOSIS [None]
  - MUSCULAR WEAKNESS [None]
  - PNEUMONIA [None]
  - PYREXIA [None]
  - RESPIRATORY DISTRESS [None]
  - RESPIRATORY FAILURE [None]
  - STAPHYLOCOCCAL SEPSIS [None]
  - THERAPEUTIC AGENT TOXICITY [None]
